FAERS Safety Report 8041828-9 (Version None)
Quarter: 2012Q1

REPORT INFORMATION
  Report Type: 
  Country: None (occurrence: None)
  Receive Date: 20120112
  Receipt Date: 20120111
  Transmission Date: 20120608
  Serious: Yes (Other)
  Sender: FDA-Public Use
  Company Number: CN-PFIZER INC-2011216140

PATIENT
  Age: 36 Year
  Sex: Male

DRUGS (6)
  1. ZOLOFT [Suspect]
     Dosage: 150 MG, 2X/DAY
     Route: 048
  2. FLUVOXAMINE [Concomitant]
     Dosage: UNK
  3. TANDOSPIRONE [Concomitant]
     Dosage: 12 TABLETS, PER DAY
  4. ZOLOFT [Suspect]
     Indication: OBSESSIVE-COMPULSIVE DISORDER
     Dosage: 2 DF, 2X/DAY
     Route: 048
     Dates: start: 20100101
  5. ZOLOFT [Suspect]
     Dosage: 250 MG PER DAY
     Route: 048
     Dates: start: 20110101
  6. ZOLOFT [Suspect]
     Indication: ANXIETY
     Dosage: 200 MG, UNK
     Route: 048
     Dates: end: 20110101

REACTIONS (4)
  - OROPHARYNGEAL DISCOMFORT [None]
  - OBSESSIVE-COMPULSIVE DISORDER [None]
  - ANXIETY [None]
  - ABNORMAL BEHAVIOUR [None]
